FAERS Safety Report 7350285-7 (Version None)
Quarter: 2011Q1

REPORT INFORMATION
  Report Type: 
  Country: None (occurrence: None)
  Receive Date: 20110314
  Receipt Date: 20110304
  Transmission Date: 20110831
  Serious: Yes (Other)
  Sender: FDA-Public Use
  Company Number: DE-ELI_LILLY_AND_COMPANY-DE201103001903

PATIENT
  Sex: Male

DRUGS (1)
  1. ZYPREXA [Suspect]
     Dates: start: 20090101

REACTIONS (4)
  - CONDUCTION DISORDER [None]
  - VENTRICULAR EXTRASYSTOLES [None]
  - ATRIAL TACHYCARDIA [None]
  - ATRIAL FLUTTER [None]
